FAERS Safety Report 22255577 (Version 1)
Quarter: 2023Q2

REPORT INFORMATION
  Report Type: Spontaneous
  Country: US (occurrence: US)
  Receive Date: 20230426
  Receipt Date: 20230426
  Transmission Date: 20230721
  Serious: No
  Sender: FDA-Public Use
  Company Number: US-ANIPHARMA-2022-US-022981

PATIENT
  Age: 83 Year
  Sex: Male
  Weight: 65.32 kg

DRUGS (6)
  1. PROPAFENONE HYDROCHLORIDE [Suspect]
     Active Substance: PROPAFENONE HYDROCHLORIDE
     Indication: Cardiac disorder
     Dosage: 1 TAB 3 TIMES A DAY
     Route: 048
     Dates: start: 20220807
  2. VITAMIN D [Concomitant]
     Active Substance: VITAMIN D NOS
  3. ASPIRIN [Concomitant]
     Active Substance: ASPIRIN
  4. OMEPRAZOLE [Concomitant]
     Active Substance: OMEPRAZOLE
  5. LIPITOR [Concomitant]
     Active Substance: ATORVASTATIN CALCIUM
     Dosage: 10 MG
  6. PLAVIX [Concomitant]
     Active Substance: CLOPIDOGREL BISULFATE
     Dosage: 75 MG

REACTIONS (2)
  - Pollakiuria [Not Recovered/Not Resolved]
  - Bladder discomfort [Not Recovered/Not Resolved]

NARRATIVE: CASE EVENT DATE: 20220827
